FAERS Safety Report 8516698-2 (Version None)
Quarter: 2012Q2

REPORT INFORMATION
  Report Type: 
  Country: None (occurrence: None)
  Receive Date: 20120406
  Receipt Date: 20101203
  Transmission Date: 20120825
  Serious: Yes (Other)
  Sender: FDA-Public Use
  Company Number: PHHY2010US83078

PATIENT
  Age: 63 Year
  Sex: Male

DRUGS (2)
  1. TASIGNA [Suspect]
     Indication: CHRONIC MYELOID LEUKAEMIA
     Dosage: 300 MG, BID, ORAL
     Route: 048
     Dates: start: 20101105
  2. PREDNISONE TAB [Concomitant]

REACTIONS (8)
  - BLOOD GLUCOSE INCREASED [None]
  - BURNING SENSATION [None]
  - ERYTHEMA [None]
  - RASH [None]
  - CONSTIPATION [None]
  - PRURITUS [None]
  - PAIN [None]
  - HAEMORRHOIDS [None]
